FAERS Safety Report 10243615 (Version 1)
Quarter: 2014Q2

REPORT INFORMATION
  Report Type: Spontaneous
  Country: NO (occurrence: None)
  Receive Date: 20140616
  Receipt Date: 20140616
  Transmission Date: 20141212
  Serious: Yes (Other)
  Sender: FDA-Public Use
  Company Number: 2014NO0242

PATIENT
  Age: 12 Year
  Sex: Male

DRUGS (5)
  1. ANAKINRA (ANAKINRA) [Suspect]
     Indication: DERMATOMYOSITIS
     Dosage: 2 MG/KG (2 MG/KG, 1 IN 1 D)
  2. ETOPOSIDE (ETOPOSIDE) (ETOPOSIDE) [Concomitant]
  3. CYCLOSPORIN (CICLOSPORIN) (CICLOSPORIN) [Concomitant]
  4. METHYLPREDNISOLONE (METHYLOPREDNISOLONE) (METHYLPREDNISOLONE) [Concomitant]
  5. INTRAVENOUS IMMUNOGLOBULIN (IMMUNOGLOBULINS NOS) (IMMUNOGLOBULINS NOS) [Concomitant]

REACTIONS (2)
  - Epilepsy [None]
  - Mental status changes [None]
